FAERS Safety Report 10330968 (Version 2)
Quarter: 2014Q3

REPORT INFORMATION
  Report Type: Report from Study
  Country: JP (occurrence: JP)
  Receive Date: 20140722
  Receipt Date: 20140819
  Transmission Date: 20150326
  Serious: Yes (Hospitalization)
  Sender: FDA-Public Use
  Company Number: JP-MUNDIPHARMA DS AND PHARMACOVIGILANCE-GBR-2014-0019456

PATIENT
  Age: 50 Year
  Sex: Female
  Weight: 95 kg

DRUGS (3)
  1. BTDS 10 MG [Suspect]
     Active Substance: BUPRENORPHINE
     Indication: ANALGESIC THERAPY
     Dosage: 10 MCG, Q1H
     Route: 062
     Dates: start: 20140303, end: 20140320
  2. MESADORON [Concomitant]
     Indication: OSTEOARTHRITIS
     Dosage: 3 MG, WEEKLY
     Route: 042
     Dates: start: 20140224, end: 20140627
  3. XYLOCAINE [Concomitant]
     Active Substance: LIDOCAINE HYDROCHLORIDE
     Dosage: 2 ML, WEEKLY
     Route: 042
     Dates: start: 20140224, end: 20140627

REACTIONS (2)
  - Electrocardiogram QT prolonged [Unknown]
  - Asthma [Recovered/Resolved]

NARRATIVE: CASE EVENT DATE: 20140320
